FAERS Safety Report 21925942 (Version 2)
Quarter: 2023Q1

REPORT INFORMATION
  Report Type: Spontaneous
  Country: EG (occurrence: EG)
  Receive Date: 20230130
  Receipt Date: 20230213
  Transmission Date: 20230417
  Serious: No
  Sender: FDA-Public Use
  Company Number: EG-MYLANLABS-2023M1009222

PATIENT
  Age: 14 Year
  Sex: Female
  Weight: 70 kg

DRUGS (2)
  1. ARIXTRA [Suspect]
     Active Substance: FONDAPARINUX SODIUM
     Indication: Deep vein thrombosis
     Dosage: 7.5 MILLIGRAM, QD
     Route: 058
  2. ARIXTRA [Suspect]
     Active Substance: FONDAPARINUX SODIUM
     Indication: Platelet count decreased

REACTIONS (2)
  - Off label use [Unknown]
  - Suspected product quality issue [Unknown]
